FAERS Safety Report 5314039-5 (Version None)
Quarter: 2007Q2

REPORT INFORMATION
  Report Type: 
  Country: None (occurrence: None)
  Receive Date: 20070501
  Receipt Date: 20070417
  Transmission Date: 20071010
  Serious: Yes (Hospitalization)
  Sender: FDA-Public Use
  Company Number: JP-ROCHE-429324

PATIENT
  Age: 9 Year
  Sex: Female
  Weight: 21 kg

DRUGS (5)
  1. TAMIFLU [Suspect]
     Dosage: FORM: DRY SYRUP.
     Route: 048
     Dates: start: 20051215, end: 20051215
  2. MUCODYNE [Concomitant]
     Dosage: DOSE WAS REDUCED FROM 0.4 GRAM 3/1 DAY TO 0.2 GRAM 3/1 DAY ON 16 DEC 2005. FORM: FINE GRANULE.
     Route: 048
     Dates: start: 20051215, end: 20051221
  3. PERIACTIN [Concomitant]
     Dosage: FORM: FINE GRANULES.
     Route: 048
     Dates: start: 20051215, end: 20051215
  4. ASVERIN [Concomitant]
     Route: 048
     Dates: start: 20051215, end: 20051221
  5. ACETAMINOPHEN [Concomitant]
     Dosage: TAKEN AS NEEDED
     Route: 048
     Dates: start: 20051216, end: 20051221

REACTIONS (1)
  - DELIRIUM [None]
